FAERS Safety Report 4528483-7 (Version None)
Quarter: 2004Q4

REPORT INFORMATION
  Report Type: 
  Country: None (occurrence: None)
  Receive Date: 20041216
  Receipt Date: 20041206
  Transmission Date: 20050328
  Serious: Yes (Other)
  Sender: FDA-Public Use
  Company Number: US-BRISTOL-MYERS SQUIBB COMPANY-12784773

PATIENT
  Age: 64 Year
  Sex: Male

DRUGS (2)
  1. TRIAMCINOLONE [Suspect]
     Indication: SPINAL CLAUDICATION
     Route: 008
  2. BUPIVACAINE [Suspect]
     Indication: SPINAL CLAUDICATION
     Route: 008

REACTIONS (2)
  - PARALYSIS [None]
  - SPINAL CORD INFARCTION [None]
